FAERS Safety Report 18681536 (Version 1)
Quarter: 2020Q4

REPORT INFORMATION
  Report Type: Spontaneous
  Country: US (occurrence: US)
  Receive Date: 20201229
  Receipt Date: 20201229
  Transmission Date: 20210114
  Serious: No
  Sender: FDA-Public Use
  Company Number: None

PATIENT
  Age: 48 Year
  Sex: Female
  Weight: 50.85 kg

DRUGS (3)
  1. BUPRENORPHINE-NALOXONE FILMS [Suspect]
     Active Substance: BUPRENORPHINE HYDROCHLORIDE\NALOXONE HYDROCHLORIDE
     Indication: SUBSTANCE USE DISORDER
     Dosage: ?          QUANTITY:56 STRIP;?
     Route: 060
     Dates: start: 20201202, end: 20201212
  2. SUBOXONE [Concomitant]
     Active Substance: BUPRENORPHINE HYDROCHLORIDE\NALOXONE HYDROCHLORIDE
  3. ELEQUISE [Concomitant]

REACTIONS (3)
  - Product substitution issue [None]
  - Drug level decreased [None]
  - Drug withdrawal syndrome [None]

NARRATIVE: CASE EVENT DATE: 20201207
